FAERS Safety Report 9507039 (Version 1)
Quarter: 2013Q3

REPORT INFORMATION
  Report Type: Spontaneous
  Country: CH (occurrence: None)
  Receive Date: 20130904
  Receipt Date: 20130904
  Transmission Date: 20140515
  Serious: Yes (Other)
  Sender: FDA-Public Use
  Company Number: DSM-2013-00790

PATIENT
  Age: 62 Year
  Sex: Male
  Weight: 91 kg

DRUGS (3)
  1. VOTUM [Suspect]
     Indication: HYPERTENSION
     Route: 048
     Dates: start: 201210, end: 20130130
  2. ZANIDIP (LERCANIDIPINE HYDROCHLORIDE) (LERCANIDIPINE [Suspect]
     Indication: HYPERTENSION
     Route: 048
     Dates: start: 201210, end: 201301
  3. PHYSIOTENS [Suspect]
     Dosage: UNKNOWN
     Dates: start: 201210, end: 20130130

REACTIONS (2)
  - Hypertension [None]
  - Drug ineffective [None]
